FAERS Safety Report 9383759 (Version 2)
Quarter: 2013Q3

REPORT INFORMATION
  Report Type: Spontaneous
  Country: US (occurrence: US)
  Receive Date: 20130704
  Receipt Date: 20130725
  Transmission Date: 20140515
  Serious: No
  Sender: FDA-Public Use
  Company Number: US-PFIZER INC-2013196262

PATIENT
  Age: 11 Year
  Sex: Female
  Weight: 44.4 kg

DRUGS (4)
  1. GENOTROPIN [Suspect]
     Indication: BODY HEIGHT ABNORMAL
     Dosage: 1.4 ML, 1X/DAY
  2. GENOTROPIN [Suspect]
     Dosage: 1.6 ML, 1X/DAY
     Dates: start: 2012
  3. GENOTROPIN [Suspect]
     Dosage: 1.8 ML, 1X/DAY
     Dates: start: 201305
  4. GENOTROPIN [Suspect]
     Dosage: UNK, 1X/DAY

REACTIONS (3)
  - Glucose tolerance impaired [Unknown]
  - Mood altered [Not Recovered/Not Resolved]
  - Aggression [Not Recovered/Not Resolved]
